FAERS Safety Report 12891872 (Version 1)
Quarter: 2016Q4

REPORT INFORMATION
  Report Type: Spontaneous
  Country: US (occurrence: US)
  Receive Date: 20161028
  Receipt Date: 20161028
  Transmission Date: 20170207
  Serious: Yes (Hospitalization)
  Sender: FDA-Public Use
  Company Number: US-STRIDES ARCOLAB LIMITED-2016SP016309

PATIENT

DRUGS (1)
  1. IBUPROFEN. [Suspect]
     Active Substance: IBUPROFEN
     Indication: PRODUCT USED FOR UNKNOWN INDICATION
     Dosage: 200 MG, UNK
     Route: 048

REACTIONS (13)
  - Skin warm [Unknown]
  - Hypothermia [Unknown]
  - Altered state of consciousness [Recovered/Resolved]
  - Coma [Unknown]
  - Toxicity to various agents [Unknown]
  - Renal tubular necrosis [Unknown]
  - Muscle twitching [Unknown]
  - Metabolic acidosis [Unknown]
  - Tachycardia [Unknown]
  - Overdose [Unknown]
  - Muscle contractions involuntary [Unknown]
  - Polyuria [Unknown]
  - Agitation [Unknown]
